FAERS Safety Report 9122004 (Version 1)
Quarter: 2012Q4

REPORT INFORMATION
  Report Type: Spontaneous
  Country: US (occurrence: None)
  Receive Date: 20121026
  Receipt Date: 20121026
  Transmission Date: 20130627
  Serious: No
  Sender: FDA-Public Use
  Company Number: 2012US-004386

PATIENT
  Age: 48 Year
  Sex: Female

DRUGS (19)
  1. OMONTYS (PEGINESATIDE) SOLUTION FOR INJECTION [Suspect]
     Route: 058
     Dates: start: 20120911, end: 20120911
  2. LACTOBACILLUS ACIDOPHILUS [Concomitant]
  3. ARGININE [Concomitant]
  4. CALCITRIOL [Concomitant]
  5. COQ10 (UBIDECARENONE) [Concomitant]
  6. COZAAR (LOSARTAN POTASSIUM) [Concomitant]
  7. DHEA (PRASTERONE) [Concomitant]
  8. FOLIC ACID [Concomitant]
  9. B-COMPLEX + VITAMIN C (ASCORBIC ACID, CALCIUM PANTOTHENATE, NICOTINAMIDE, PYRIDOXINE HYDROCHLORIDE, RIBOFLAVIN, THIAMINE HYDROCHLORIDE) [Concomitant]
  10. FUROSEMIDE [Concomitant]
  11. HEPARIN [Concomitant]
  12. LACTULOSE [Concomitant]
  13. LANTUS (INSULIN GLARGINE) [Concomitant]
  14. L-CARNITINE (LEVOCARNITINE) [Concomitant]
  15. NOVOLOG (INSULIN ASPART) [Concomitant]
  16. OMEGA 3 (FISH OIL) [Concomitant]
  17. RENVELA (SEVELAMER CARBONATE) [Concomitant]
  18. TART CHERRY ADVANCED [Concomitant]
  19. ZINC [Concomitant]

REACTIONS (4)
  - Confusional state [None]
  - Muscle spasms [None]
  - Pain in extremity [None]
  - Pyrexia [None]
